FAERS Safety Report 9032671 (Version 1)
Quarter: 2013Q1

REPORT INFORMATION
  Report Type: Spontaneous
  Country: US (occurrence: None)
  Receive Date: 20130110
  Receipt Date: 20130110
  Transmission Date: 20140127
  Serious: Yes (Other)
  Sender: FDA-Public Use
  Company Number: TPA2012A09248

PATIENT
  Age: 67 Year
  Sex: Male
  Weight: 97.07 kg

DRUGS (2)
  1. ACTOS (PIOGLITAZONE HYDROCHLORIDE) [Suspect]
     Indication: TYPE 2 DIABETES MELLITUS
     Dates: start: 200303, end: 200701
  2. HUMULIN (INSULIN HUMAN ZINC SUSPENSION) [Concomitant]

REACTIONS (1)
  - Bladder cancer [None]
